FAERS Safety Report 6055092-3 (Version None)
Quarter: 2009Q1

REPORT INFORMATION
  Report Type: 
  Country: None (occurrence: None)
  Receive Date: 20090128
  Receipt Date: 20090122
  Transmission Date: 20090719
  Serious: Yes (Life-Threatening, Other)
  Sender: FDA-Public Use
  Company Number: GR-AMGEN-UK280316

PATIENT
  Age: 65 Year
  Sex: Female
  Weight: 68 kg

DRUGS (6)
  1. NEULASTA [Suspect]
     Indication: CHEMOTHERAPY
     Route: 058
     Dates: start: 20080322, end: 20080322
  2. MABTHERA [Concomitant]
  3. ENDOXAN [Concomitant]
  4. ONCOVIN [Concomitant]
  5. DOXORUBICIN HCL [Concomitant]
  6. MEDROL [Concomitant]

REACTIONS (1)
  - NEUTROPENIA [None]
